FAERS Safety Report 12253083 (Version 2)
Quarter: 2016Q4

REPORT INFORMATION
  Report Type: Spontaneous
  Country: PT (occurrence: PT)
  Receive Date: 20160411
  Receipt Date: 20161107
  Transmission Date: 20170207
  Serious: Yes (Other)
  Sender: FDA-Public Use
  Company Number: PT-PFIZER INC-2016138816

PATIENT
  Age: 66 Year
  Sex: Male

DRUGS (5)
  1. XANAX XR [Suspect]
     Active Substance: ALPRAZOLAM
     Indication: ANXIETY
     Dosage: 1 MG, 2X/DAY
     Route: 048
     Dates: start: 1990, end: 201602
  2. XANAX XR [Suspect]
     Active Substance: ALPRAZOLAM
     Dosage: 0.25 MG, DAILY
     Route: 048
     Dates: end: 201603
  3. ASPIRINA [Concomitant]
     Active Substance: ASPIRIN
     Indication: PROPHYLAXIS
     Dosage: UNK
  4. CIPRALEX [Suspect]
     Active Substance: ESCITALOPRAM OXALATE
     Indication: ANXIETY
     Dosage: UNK
     Dates: start: 2013
  5. XANAX XR [Suspect]
     Active Substance: ALPRAZOLAM
     Dosage: 0.5 MG, DAILY
     Route: 048
     Dates: start: 201602

REACTIONS (7)
  - Poor quality sleep [Unknown]
  - Intentional product misuse [Unknown]
  - Visual impairment [Unknown]
  - Nightmare [Unknown]
  - Insomnia [Unknown]
  - Carotid arteriosclerosis [Unknown]
  - Amnesia [Recovered/Resolved]
